FAERS Safety Report 16118111 (Version 1)
Quarter: 2019Q1

REPORT INFORMATION
  Report Type: Spontaneous
  Country: JP (occurrence: JP)
  Receive Date: 20190326
  Receipt Date: 20190326
  Transmission Date: 20190418
  Serious: Yes (Death, Life-Threatening, Hospitalization, Other)
  Sender: FDA-Public Use
  Company Number: JP-ACTELION-A-CH2019-187895

PATIENT
  Age: 56 Year
  Sex: Female

DRUGS (4)
  1. UPTRAVI [Suspect]
     Active Substance: SELEXIPAG
     Indication: PULMONARY HYPERTENSION
     Route: 048
  2. OPSUMIT [Suspect]
     Active Substance: MACITENTAN
     Indication: PULMONARY HYPERTENSION
     Route: 048
  3. SILDENAFIL. [Suspect]
     Active Substance: SILDENAFIL
     Indication: PRODUCT USED FOR UNKNOWN INDICATION
     Route: 065
  4. WARFARIN [Suspect]
     Active Substance: WARFARIN
     Indication: PRODUCT USED FOR UNKNOWN INDICATION
     Route: 065

REACTIONS (19)
  - Multiple organ dysfunction syndrome [Fatal]
  - Shock [Unknown]
  - Extracorporeal membrane oxygenation [Unknown]
  - Transfusion [Unknown]
  - Pneumonia bacterial [Unknown]
  - Interstitial lung disease [Unknown]
  - Acute respiratory failure [Unknown]
  - Retroperitoneal haemorrhage [Unknown]
  - Haemorrhage subcutaneous [Unknown]
  - Abdominal distension [Unknown]
  - Dyspnoea [Unknown]
  - Arterial rupture [Unknown]
  - Intra-abdominal haemorrhage [Unknown]
  - Arterial haemorrhage [Unknown]
  - Pyrexia [Unknown]
  - Abdominal compartment syndrome [Unknown]
  - Hypoxia [Unknown]
  - Pulmonary hypertension [Unknown]
  - Endotracheal intubation [Unknown]
